FAERS Safety Report 13642113 (Version 1)
Quarter: 2017Q2

REPORT INFORMATION
  Report Type: Spontaneous
  Country: FR (occurrence: FR)
  Receive Date: 20170612
  Receipt Date: 20170612
  Transmission Date: 20170830
  Serious: Yes (Other)
  Sender: FDA-Public Use
  Company Number: FR-ALSI-201700166

PATIENT
  Age: 71 Year
  Sex: Male

DRUGS (1)
  1. OXYGEN MEDICINAL [Suspect]
     Active Substance: OXYGEN
     Indication: PRODUCT USED FOR UNKNOWN INDICATION
     Route: 055
     Dates: start: 20140407

REACTIONS (3)
  - Intentional product misuse [Unknown]
  - Burns third degree [Unknown]
  - Thermal burn [Unknown]

NARRATIVE: CASE EVENT DATE: 20170602
